FAERS Safety Report 18170256 (Version 1)
Quarter: 2020Q3

REPORT INFORMATION
  Report Type: Spontaneous
  Country: KR (occurrence: KR)
  Receive Date: 20200819
  Receipt Date: 20200819
  Transmission Date: 20201103
  Serious: Yes (Death)
  Sender: FDA-Public Use
  Company Number: KR-PFIZER INC-2020320058

PATIENT
  Age: 61 Year
  Sex: Female

DRUGS (6)
  1. XALKORI [Suspect]
     Active Substance: CRIZOTINIB
     Dosage: 1 DF, 2X/DAY, AFTER MEAL IN THE MORNING AND EVENING
     Route: 048
     Dates: start: 20170921
  2. DEXAMETHASONE. [Concomitant]
     Active Substance: DEXAMETHASONE
     Dosage: 2 MG, 2X/DAY, AFTER MEAL
     Route: 048
     Dates: start: 20170921
  3. XALKORI [Suspect]
     Active Substance: CRIZOTINIB
     Dosage: 1 DF, 2X/DAY, AFTER MEAL IN THE MORNING AND EVENING
     Route: 048
     Dates: start: 20171010
  4. DEXAMETHASONE. [Concomitant]
     Active Substance: DEXAMETHASONE
     Dosage: 2 MG, 1X/DAY, AFTER MEAL
     Route: 048
     Dates: start: 20170928
  5. CERAZINE [Concomitant]
     Indication: PRURITUS
     Dosage: 1 DF, 1X/DAY, BEFORE SLEEP, WHEN NEEDED
     Route: 048
     Dates: start: 20171010
  6. GASTER [Concomitant]
     Active Substance: FAMOTIDINE
     Dosage: 1 DF, 2X/DAY, AFTER MEAL
     Route: 048
     Dates: start: 20170921

REACTIONS (1)
  - Death [Fatal]
